FAERS Safety Report 5357034-2 (Version None)
Quarter: 2007Q2

REPORT INFORMATION
  Report Type: 
  Country: None (occurrence: None)
  Receive Date: 20070612
  Receipt Date: 20070612
  Transmission Date: 20071010
  Serious: Yes (Life-Threatening, Hospitalization)
  Sender: FDA-Public Use
  Company Number: None

PATIENT
  Age: 44 Year
  Sex: Female
  Weight: 52.6173 kg

DRUGS (3)
  1. LEVOFLOXACIN [Suspect]
     Indication: PNEUMONIA
     Dosage: 250 MG IV Q 24 H
     Route: 042
     Dates: start: 20060823, end: 20060825
  2. LEVOFLOXACIN [Suspect]
     Indication: PNEUMONIA
     Dosage: 250 MG IV Q 24 H
     Route: 042
     Dates: start: 20060826, end: 20060902
  3. DECADRON [Concomitant]

REACTIONS (3)
  - ASTHENIA [None]
  - DIZZINESS [None]
  - HYPOGLYCAEMIA [None]
